FAERS Safety Report 24104060 (Version 3)
Quarter: 2024Q3

REPORT INFORMATION
  Report Type: Report from Study
  Country: GB (occurrence: GB)
  Receive Date: 20240717
  Receipt Date: 20240925
  Transmission Date: 20241017
  Serious: Yes (Disabling, Other)
  Sender: ROCHE
  Company Number: GB-ROCHE-3536606

PATIENT
  Age: 57 Year
  Sex: Female

DRUGS (5)
  1. ACTEMRA [Suspect]
     Active Substance: TOCILIZUMAB
     Indication: Giant cell arteritis
     Route: 058
     Dates: start: 20230327
  2. ACTEMRA [Suspect]
     Active Substance: TOCILIZUMAB
     Route: 058
     Dates: start: 2023
  3. ROPINIROLE [Concomitant]
     Active Substance: ROPINIROLE
  4. OMEPRAZOLE [Concomitant]
     Active Substance: OMEPRAZOLE
  5. FOLIC ACID [Concomitant]
     Active Substance: FOLIC ACID

REACTIONS (7)
  - Urinary tract infection [Unknown]
  - Immunodeficiency [Unknown]
  - Ear infection [Not Recovered/Not Resolved]
  - Infection [Unknown]
  - Malaise [Unknown]
  - Ear infection [Unknown]
  - Ear disorder [Unknown]

NARRATIVE: CASE EVENT DATE: 20240101
